FAERS Safety Report 9644742 (Version 1)
Quarter: 2013Q4

REPORT INFORMATION
  Report Type: Spontaneous
  Country: US (occurrence: US)
  Receive Date: 20131025
  Receipt Date: 20131025
  Transmission Date: 20140711
  Serious: No
  Sender: FDA-Public Use
  Company Number: US-PFIZER INC-2013301121

PATIENT
  Age: 58 Year
  Sex: Female

DRUGS (2)
  1. AMLODIPINE BESILATE [Suspect]
     Indication: BLOOD PRESSURE
     Dosage: 5 MG, UNK
     Dates: start: 20130815
  2. LOSARTAN POTASSIUM [Suspect]
     Indication: BLOOD PRESSURE
     Dosage: 50 MG, UNK
     Dates: start: 20130815

REACTIONS (1)
  - Drug ineffective [Unknown]
